FAERS Safety Report 19508496 (Version 2)
Quarter: 2021Q3

REPORT INFORMATION
  Report Type: Report from Study
  Country: None (occurrence: US)
  Receive Date: 20210709
  Receipt Date: 20210715
  Transmission Date: 20211014
  Serious: Yes (Other)
  Sender: FDA-Public Use
  Company Number: US-ABBVIE-21K-163-3980768-00

PATIENT
  Sex: Female

DRUGS (2)
  1. HUMIRA [Suspect]
     Active Substance: ADALIMUMAB
     Dosage: CITRATE FREE
     Route: 058
     Dates: start: 2021
  2. HUMIRA [Suspect]
     Active Substance: ADALIMUMAB
     Indication: CROHN^S DISEASE
     Dosage: CITRATE FREE
     Route: 058
     Dates: start: 20210323, end: 2021

REACTIONS (14)
  - Drug ineffective [Unknown]
  - Nausea [Recovering/Resolving]
  - Depressed mood [Recovering/Resolving]
  - Faeces soft [Recovering/Resolving]
  - Infected fistula [Unknown]
  - Malaise [Recovering/Resolving]
  - Anxiety [Recovering/Resolving]
  - Rectal haemorrhage [Recovering/Resolving]
  - Pyrexia [Recovering/Resolving]
  - Decreased appetite [Recovering/Resolving]
  - Loss of personal independence in daily activities [Recovering/Resolving]
  - Abdominal pain [Recovering/Resolving]
  - Diarrhoea haemorrhagic [Recovering/Resolving]
  - Abscess [Unknown]

NARRATIVE: CASE EVENT DATE: 2021
